FAERS Safety Report 7455909-1 (Version None)
Quarter: 2011Q2

REPORT INFORMATION
  Report Type: 
  Country: None (occurrence: None)
  Receive Date: 20110503
  Receipt Date: 20110502
  Transmission Date: 20111010
  Serious: Yes (Other)
  Sender: FDA-Public Use
  Company Number: D0071002A

PATIENT
  Sex: Female
  Weight: 63.3 kg

DRUGS (2)
  1. ARIXTRA [Suspect]
     Indication: THROMBOSIS PROPHYLAXIS
     Dosage: 2.5MG PER DAY
     Route: 058
     Dates: start: 20110321, end: 20110328
  2. ASPIRIN [Concomitant]
     Dosage: 100MG PER DAY
     Route: 065
     Dates: end: 20110328

REACTIONS (2)
  - CHRONIC OBSTRUCTIVE PULMONARY DISEASE [None]
  - INTRA-ABDOMINAL HAEMORRHAGE [None]
